FAERS Safety Report 12905558 (Version 1)
Quarter: 2016Q4

REPORT INFORMATION
  Report Type: Report from Study
  Country: US (occurrence: US)
  Receive Date: 20161103
  Receipt Date: 20161103
  Transmission Date: 20170207
  Serious: Yes (Other)
  Sender: FDA-Public Use
  Company Number: US-ROCHE-1847721

PATIENT

DRUGS (4)
  1. INTERLEUKIN 2 [Suspect]
     Active Substance: ALDESLEUKIN
     Indication: RENAL CELL CARCINOMA
     Dosage: (11X10^6 IU DAILY, 4 DAYS A WEEK) FOR 4 WEEKS (WEEKS 5-8), FOLLOWED BY A 2-WEEK REST (WEEKS 9 AND 10
     Route: 058
  2. INTERLEUKIN 2 [Suspect]
     Active Substance: ALDESLEUKIN
     Indication: MALIGNANT MELANOMA
  3. RITUXIMAB [Suspect]
     Active Substance: RITUXIMAB
     Indication: RENAL CELL CARCINOMA
     Dosage: FOR WEEK 1 TO 4
     Route: 042
  4. RITUXIMAB [Suspect]
     Active Substance: RITUXIMAB
     Indication: MALIGNANT MELANOMA

REACTIONS (8)
  - Nausea [Unknown]
  - Thrombosis [Unknown]
  - Fatigue [Unknown]
  - Hyperglycaemia [Unknown]
  - Anaemia [Unknown]
  - Vomiting [Unknown]
  - Hypotension [Unknown]
  - Diarrhoea [Unknown]
